FAERS Safety Report 9380507 (Version 4)
Quarter: 2014Q3

REPORT INFORMATION
  Report Type: Spontaneous
  Country: FR (occurrence: None)
  Receive Date: 20130628
  Receipt Date: 20140725
  Transmission Date: 20150326
  Serious: Yes (Hospitalization, Other)
  Sender: FDA-Public Use
  Company Number: AUR-APL-2013-05320

PATIENT
  Age: 64 Year
  Sex: Female

DRUGS (5)
  1. FEMARA [Suspect]
     Active Substance: LETROZOLE
     Indication: PRODUCT USED FOR UNKNOWN INDICATION
     Route: 048
     Dates: end: 20130422
  2. TRIATEC [Suspect]
     Active Substance: RAMIPRIL
     Indication: PRODUCT USED FOR UNKNOWN INDICATION
     Route: 048
     Dates: end: 20130426
  3. VISIPAQUE [Suspect]
     Active Substance: IODIXANOL
     Indication: PRODUCT USED FOR UNKNOWN INDICATION
     Route: 042
     Dates: start: 20130311, end: 20130411
  4. METFORMIN [Suspect]
     Active Substance: METFORMIN HYDROCHLORIDE
     Indication: PRODUCT USED FOR UNKNOWN INDICATION
     Route: 048
     Dates: end: 20130425
  5. PAMIDRONATE DISODIUM. [Suspect]
     Active Substance: PAMIDRONATE DISODIUM
     Indication: PRODUCT USED FOR UNKNOWN INDICATION
     Route: 042
     Dates: start: 20130410, end: 20130410

REACTIONS (18)
  - Leukocytosis [None]
  - Condition aggravated [None]
  - Hepatocellular injury [None]
  - Blood creatinine increased [None]
  - Pruritus [None]
  - Drug reaction with eosinophilia and systemic symptoms [None]
  - Histiocytosis haematophagic [None]
  - Eosinophilia [None]
  - Neutrophil count increased [None]
  - Rash [None]
  - Atrial fibrillation [None]
  - Epstein-Barr virus infection [None]
  - General physical health deterioration [None]
  - C-reactive protein increased [None]
  - Renal impairment [None]
  - Skin lesion [None]
  - Rash maculo-papular [None]
  - Hypotension [None]

NARRATIVE: CASE EVENT DATE: 20130417
